FAERS Safety Report 10177737 (Version 2)
Quarter: 2014Q2

REPORT INFORMATION
  Report Type: Spontaneous
  Country: MX (occurrence: MX)
  Receive Date: 20140516
  Receipt Date: 20140516
  Transmission Date: 20141212
  Serious: Yes (Other)
  Sender: FDA-Public Use
  Company Number: MX-009507513-1404MEX012610

PATIENT
  Age: 34 Year
  Sex: Female

DRUGS (1)
  1. IMPLANON [Suspect]
     Indication: CONTRACEPTION
     Dosage: IMPLANT FOR THREE YEARS, STRENGTH:  60-70 UG/DAY WEEK 5-6, 35-45 UG/DAY AT THE END OF 1ST YEAR
     Route: 059
     Dates: start: 2012, end: 2012

REACTIONS (6)
  - Abortion spontaneous complete [Recovered/Resolved]
  - Device dislocation [Recovered/Resolved]
  - Implant site dermatitis [Recovered/Resolved]
  - Weight decreased [Unknown]
  - Unintended pregnancy [Recovered/Resolved]
  - Urinary tract infection [Recovered/Resolved]
